FAERS Safety Report 8011982-3 (Version None)
Quarter: 2011Q4

REPORT INFORMATION
  Report Type: 
  Country: None (occurrence: None)
  Receive Date: 20111228
  Receipt Date: 20111222
  Transmission Date: 20120403
  Serious: Yes (Death)
  Sender: FDA-Public Use
  Company Number: US-GLAXOSMITHKLINE-A0959247A

PATIENT
  Age: 64 Year
  Sex: Female
  Weight: 62.7 kg

DRUGS (6)
  1. DEXAMETHASONE [Concomitant]
  2. AMLODIPINE BESYLATE [Concomitant]
  3. OXCARBAZEPINE [Concomitant]
  4. NEXIUM [Concomitant]
  5. TYKERB [Suspect]
     Indication: NEOPLASM MALIGNANT
     Dosage: 1250MGD PER DAY
     Route: 048
     Dates: start: 20111115
  6. VITAMIN D [Concomitant]

REACTIONS (1)
  - DEATH [None]
